FAERS Safety Report 8144037-8 (Version None)
Quarter: 2012Q1

REPORT INFORMATION
  Report Type: 
  Country: None (occurrence: None)
  Receive Date: 20120217
  Receipt Date: 20120217
  Transmission Date: 20120608
  Serious: Yes (Other)
  Sender: FDA-Public Use
  Company Number: None

PATIENT
  Sex: Female
  Weight: 127 kg

DRUGS (1)
  1. XARELTO [Suspect]

REACTIONS (6)
  - NAUSEA [None]
  - DIARRHOEA [None]
  - EYE IRRITATION [None]
  - ABDOMINAL DISCOMFORT [None]
  - MUSCULAR WEAKNESS [None]
  - DYSPNOEA [None]
